FAERS Safety Report 6125383-6 (Version None)
Quarter: 2009Q1

REPORT INFORMATION
  Report Type: 
  Country: None (occurrence: None)
  Receive Date: 20090317
  Receipt Date: 20090302
  Transmission Date: 20090719
  Serious: Yes (Death, Life-Threatening, Hospitalization)
  Sender: FDA-Public Use
  Company Number: 2008003320

PATIENT
  Age: 73 Year
  Sex: Male
  Weight: 61.2 kg

DRUGS (9)
  1. ERLOTINIB (ERLOTINIB) (TABLET) (ERLOTINIB) [Suspect]
     Indication: LUNG SQUAMOUS CELL CARCINOMA STAGE UNSPECIFIED
     Dosage: 150 MG, QD, ORAL
     Route: 048
     Dates: start: 20081118, end: 20081129
  2. TAXOTERE [Suspect]
     Dates: start: 20080816, end: 20080826
  3. AMLODIPINE [Concomitant]
  4. BLOPESS (CANDESARTAN CILEXETIL) [Concomitant]
  5. LOXOPROFEN (LOXOPROFEN) [Concomitant]
  6. MUCOSTA (REBAMIPIDE) [Concomitant]
  7. LENDORM [Concomitant]
  8. CODEINE PHOSPHATE (CODEINE PHOSPHATE) [Concomitant]
  9. BIO-THREE [Concomitant]

REACTIONS (16)
  - ARTERIOSCLEROSIS [None]
  - BRONCHOPNEUMONIA [None]
  - CAROTID ARTERY STENOSIS [None]
  - CEREBRAL INFARCTION [None]
  - CORONARY ARTERY STENOSIS [None]
  - DISEASE PROGRESSION [None]
  - DISSEMINATED INTRAVASCULAR COAGULATION [None]
  - HYPERTENSION [None]
  - INTERSTITIAL LUNG DISEASE [None]
  - LEFT VENTRICULAR HYPERTROPHY [None]
  - MORAXELLA INFECTION [None]
  - PLEURAL EFFUSION [None]
  - PSEUDOMONAS INFECTION [None]
  - RENAL ARTERY STENOSIS [None]
  - STAPHYLOCOCCAL INFECTION [None]
  - VENTRICULAR EXTRASYSTOLES [None]
